FAERS Safety Report 16497442 (Version 2)
Quarter: 2022Q3

REPORT INFORMATION
  Report Type: Spontaneous
  Country: US (occurrence: US)
  Receive Date: 20190628
  Receipt Date: 20220829
  Transmission Date: 20221027
  Serious: No
  Sender: FDA-Public Use
  Company Number: US-VIFOR (INTERNATIONAL) INC.-VIT-2016-03269

PATIENT
  Age: 79 Year
  Sex: Male

DRUGS (17)
  1. VELTASSA [Suspect]
     Active Substance: PATIROMER
     Indication: Hyperkalaemia
     Route: 048
  2. VELTASSA [Suspect]
     Active Substance: PATIROMER
     Dosage: DISSOLVE CONTENTS OF ONE PACKAGE INTO 1/3 CUP OF WATER AND DRINK FULL AMOUNT DAILY AS DIRECTED.
     Route: 048
     Dates: start: 20160528
  3. ASPIRIN [Concomitant]
     Active Substance: ASPIRIN
  4. CARVEDILOL [Concomitant]
     Active Substance: CARVEDILOL
  5. GLICLAZIDE [Concomitant]
     Active Substance: GLICLAZIDE
     Dosage: CHEWABLE
  6. DELZICOLE [Concomitant]
  7. DUTASTERIDE [Concomitant]
     Active Substance: DUTASTERIDE
  8. FOLTANX [Concomitant]
  9. HUMALOG [Concomitant]
     Active Substance: INSULIN LISPRO
     Dosage: 75/25 KWP, MIX INJ
  10. LEVEMIR [Concomitant]
     Active Substance: INSULIN DETEMIR
  11. VITAMINS [Concomitant]
     Active Substance: VITAMINS
     Dosage: MEN 50+
  12. OCUVITE + LUTEIN [Concomitant]
  13. PANTOPRAZOLE [Concomitant]
     Active Substance: PANTOPRAZOLE
  14. RAMIPRIL [Concomitant]
     Active Substance: RAMIPRIL
  15. SIMVASTATIN [Concomitant]
     Active Substance: SIMVASTATIN
  16. TAMSULOSIN [Concomitant]
     Active Substance: TAMSULOSIN
  17. TYLENOL [Concomitant]
     Active Substance: ACETAMINOPHEN
     Dosage: 8 HR

REACTIONS (2)
  - Constipation [Not Recovered/Not Resolved]
  - Product dose omission issue [Unknown]

NARRATIVE: CASE EVENT DATE: 20160527
